FAERS Safety Report 5200358-X (Version None)
Quarter: 2007Q1

REPORT INFORMATION
  Report Type: 
  Country: None (occurrence: None)
  Receive Date: 20070105
  Receipt Date: 20061227
  Transmission Date: 20070707
  Serious: Yes (Hospitalization)
  Sender: FDA-Public Use
  Company Number: JP-PFIZER INC-2006156035

PATIENT
  Age: 47 Year
  Sex: Female

DRUGS (3)
  1. PHARMORUBICIN [Suspect]
     Indication: BREAST CANCER
     Dosage: DAILY DOSE:100MG/M*2
     Route: 042
  2. FLUOROURACIL [Concomitant]
     Route: 042
  3. ENDOXAN [Concomitant]
     Route: 042
     Dates: end: 20061213

REACTIONS (3)
  - ALANINE AMINOTRANSFERASE INCREASED [None]
  - ASPARTATE AMINOTRANSFERASE INCREASED [None]
  - HEPATIC FUNCTION ABNORMAL [None]
